FAERS Safety Report 22260487 (Version 3)
Quarter: 2023Q2

REPORT INFORMATION
  Report Type: Spontaneous
  Country: DE (occurrence: DE)
  Receive Date: 20230427
  Receipt Date: 20230518
  Transmission Date: 20230721
  Serious: Yes (Other)
  Sender: FDA-Public Use
  Company Number: DE-ORGANON-O2304DEU002455

PATIENT
  Age: 38 Year
  Sex: Female
  Weight: 59 kg

DRUGS (5)
  1. ETONOGESTREL [Suspect]
     Active Substance: ETONOGESTREL
     Indication: Contraception
     Dosage: 1 IMPLANT
     Route: 059
     Dates: start: 20220428, end: 20230424
  2. TIMONIL 600 RETARD [Concomitant]
     Indication: Epilepsy
     Dosage: SHE HAS BEEN TAKING AN ANTIEPILEPTIC SINCE SHE WAS 19
     Dates: start: 2004
  3. TIMONIL 600 RETARD [Concomitant]
     Dosage: HIGHER DOSES IN PREVIOUS YEARS
  4. TIMONIL 600 RETARD [Concomitant]
     Dosage: MUCH HIGHER DOSE IN 2015
     Dates: start: 2015
  5. TIMONIL 600 RETARD [Concomitant]
     Dosage: CURRENTLY TIMONIL 600 RET. 2X1.

REACTIONS (2)
  - Pregnancy with implant contraceptive [Not Recovered/Not Resolved]
  - Unintended pregnancy [Not Recovered/Not Resolved]

NARRATIVE: CASE EVENT DATE: 20230106
